FAERS Safety Report 4416146-8 (Version None)
Quarter: 2004Q3

REPORT INFORMATION
  Report Type: 
  Country: None (occurrence: None)
  Receive Date: 20040730
  Receipt Date: 20040716
  Transmission Date: 20050211
  Serious: Yes (Death)
  Sender: FDA-Public Use
  Company Number: 2004S1000131

PATIENT
  Age: 26 Year
  Sex: Female

DRUGS (4)
  1. CUBICIN [Suspect]
     Indication: ENTEROCOCCAL BACTERAEMIA
     Dosage: 8 MG/KG/Q24H;IV
     Route: 042
     Dates: start: 20040430, end: 20040608
  2. CUBICIN [Suspect]
     Indication: GLYCOPEPTIDE ANTIBIOTIC RESISTANT ENTEROCOCCAL INFECTION
     Dosage: 8 MG/KG/Q24H;IV
     Route: 042
     Dates: start: 20040430, end: 20040608
  3. CHLORAMPHENICOL [Concomitant]
  4. IMIPENEM [Concomitant]

REACTIONS (5)
  - BACTERIAL INFECTION [None]
  - BLOOD CULTURE POSITIVE [None]
  - ENTEROCOCCAL INFECTION [None]
  - FUNGAL INFECTION [None]
  - GASTROINTESTINAL INFECTION [None]
